APPROVED DRUG PRODUCT: SYNKAYVITE
Active Ingredient: MENADIOL SODIUM DIPHOSPHATE
Strength: 10MG/ML
Dosage Form/Route: INJECTABLE;INJECTION
Application: N003718 | Product #006
Applicant: HOFFMANN LA ROCHE INC
Approved: Approved Prior to Jan 1, 1982 | RLD: No | RS: No | Type: DISCN